FAERS Safety Report 5939594-3 (Version None)
Quarter: 2008Q4

REPORT INFORMATION
  Report Type: 
  Country: None (occurrence: None)
  Receive Date: 20081030
  Receipt Date: 20081017
  Transmission Date: 20090506
  Serious: Yes (Hospitalization)
  Sender: FDA-Public Use
  Company Number: US024878

PATIENT
  Age: 53 Year
  Sex: Male
  Weight: 102.0593 kg

DRUGS (7)
  1. PROVIGIL [Suspect]
     Indication: SLEEP APNOEA SYNDROME
     Dosage: 200 MG QD ORAL
     Route: 048
     Dates: start: 20050101
  2. MUCINEX [Concomitant]
  3. ATROVENT [Concomitant]
  4. GLUCOSAMINE [Concomitant]
  5. METAMUCIL [Concomitant]
  6. CLINDAMYCIN HCL [Concomitant]
  7. FLAGYL [Concomitant]

REACTIONS (1)
  - COLITIS ISCHAEMIC [None]
